FAERS Safety Report 19554044 (Version 1)
Quarter: 2021Q3

REPORT INFORMATION
  Report Type: Spontaneous
  Country: US (occurrence: US)
  Receive Date: 20210715
  Receipt Date: 20210715
  Transmission Date: 20211014
  Serious: No
  Sender: FDA-Public Use
  Company Number: US-AJANTA PHARMA USA INC.-2113861

PATIENT
  Age: 52 Year
  Sex: Female

DRUGS (1)
  1. CHOLESTYRAMINE (ANDA 211119) [Suspect]
     Active Substance: CHOLESTYRAMINE
     Indication: GALLBLADDER DISORDER
     Route: 048
     Dates: start: 20210616

REACTIONS (5)
  - Product solubility abnormal [Recovered/Resolved]
  - Product substitution issue [Recovered/Resolved]
  - Product taste abnormal [Recovered/Resolved]
  - Foreign body in throat [Recovered/Resolved]
  - Off label use [Not Recovered/Not Resolved]

NARRATIVE: CASE EVENT DATE: 202106
